FAERS Safety Report 15309404 (Version 1)
Quarter: 2018Q3

REPORT INFORMATION
  Report Type: Spontaneous
  Country: US (occurrence: US)
  Receive Date: 20180811
  Receipt Date: 20180811
  Transmission Date: 20181010
  Serious: No
  Sender: FDA-Public Use
  Company Number: None

PATIENT
  Age: 53 Year
  Sex: Male

DRUGS (1)
  1. EPCLUSA [Suspect]
     Active Substance: SOFOSBUVIR\VELPATASVIR
     Indication: HEPATITIS C
     Route: 048

REACTIONS (7)
  - Nausea [None]
  - Headache [None]
  - Influenza like illness [None]
  - Insomnia [None]
  - Hunger [None]
  - Bladder cancer [None]
  - Fatigue [None]

NARRATIVE: CASE EVENT DATE: 20180801
